FAERS Safety Report 14850214 (Version 2)
Quarter: 2018Q4

REPORT INFORMATION
  Report Type: Spontaneous
  Country: AU (occurrence: AU)
  Receive Date: 20180505
  Receipt Date: 20181003
  Transmission Date: 20190204
  Serious: Yes (Death, Hospitalization, Other)
  Sender: FDA-Public Use
  Company Number: AU-TEVA-2018-AU-887044

PATIENT
  Age: 87 Year
  Sex: Male

DRUGS (3)
  1. THYROXINE [Concomitant]
     Active Substance: LEVOTHYROXINE
     Indication: HYPERTHYROIDISM
     Dosage: 150 MICROGRAM DAILY;
     Route: 048
  2. IMATINIB. [Suspect]
     Active Substance: IMATINIB MESYLATE
     Indication: CHRONIC MYELOID LEUKAEMIA
     Dosage: 200 MILLIGRAM DAILY; IMATINIB 200MG
     Route: 048
     Dates: end: 20171010
  3. PREDNISOLONE. [Concomitant]
     Active Substance: PREDNISOLONE
     Indication: POLYMYALGIA RHEUMATICA
     Dosage: 25 MILLIGRAM DAILY; PREDNISOLONE 25MG
     Route: 048
     Dates: start: 20170929

REACTIONS (7)
  - Therapeutic response decreased [Fatal]
  - Acute kidney injury [Fatal]
  - Disseminated intravascular coagulation [Fatal]
  - Pneumonia [Fatal]
  - Renal failure [Fatal]
  - Thrombocytopenia [Fatal]
  - Necrotising myositis [Fatal]

NARRATIVE: CASE EVENT DATE: 20171010
